FAERS Safety Report 4666465-5 (Version None)
Quarter: 2005Q2

REPORT INFORMATION
  Report Type: 
  Country: None (occurrence: None)
  Receive Date: 20050518
  Receipt Date: 20050510
  Transmission Date: 20051028
  Serious: Yes (Other)
  Sender: FDA-Public Use
  Company Number: 2005052190

PATIENT
  Sex: Male
  Weight: 84.369 kg

DRUGS (1)
  1. LIPITOR [Suspect]
     Indication: BLOOD CHOLESTEROL INCREASED
     Dates: start: 20000401

REACTIONS (5)
  - LIVER DISORDER [None]
  - LIVER FUNCTION TEST ABNORMAL [None]
  - MUSCLE FATIGUE [None]
  - MUSCLE INJURY [None]
  - SPINAL COLUMN STENOSIS [None]
